FAERS Safety Report 9350741 (Version 1)
Quarter: 2013Q2

REPORT INFORMATION
  Report Type: Spontaneous
  Country: US (occurrence: US)
  Receive Date: 20130617
  Receipt Date: 20130617
  Transmission Date: 20140414
  Serious: Yes (Other)
  Sender: FDA-Public Use
  Company Number: 2013SP004651

PATIENT
  Age: 59 Year
  Sex: Male

DRUGS (5)
  1. HALOPERIDOL DECANOATE [Suspect]
     Indication: AGITATION
     Route: 042
  2. DEXMEDETOMIDINE [Suspect]
     Indication: SEDATIVE THERAPY
  3. DEXMEDETOMIDINE [Suspect]
     Indication: AGITATION
  4. MILRINONE [Concomitant]
  5. FENTANYL [Concomitant]

REACTIONS (4)
  - Ventricular fibrillation [Recovered/Resolved]
  - Cardiac arrest [Recovered/Resolved]
  - Ventricular tachycardia [Recovered/Resolved]
  - Ventricular extrasystoles [Recovered/Resolved]
